FAERS Safety Report 5692711-5 (Version None)
Quarter: 2008Q2

REPORT INFORMATION
  Report Type: 
  Country: None (occurrence: None)
  Receive Date: 20080401
  Receipt Date: 20080324
  Transmission Date: 20081010
  Serious: Yes (Death, Life-Threatening, Hospitalization)
  Sender: FDA-Public Use
  Company Number: 080040

PATIENT
  Age: 44 Year
  Sex: Female
  Weight: 68 kg

DRUGS (3)
  1. MIRALAX [Suspect]
     Indication: CONSTIPATION
  2. SUTENT [Concomitant]
  3. LACTULOSE [Concomitant]

REACTIONS (4)
  - CARDIAC FAILURE CONGESTIVE [None]
  - DEHYDRATION [None]
  - HYPERTENSION [None]
  - VENTRICULAR HYPOKINESIA [None]
